FAERS Safety Report 13914593 (Version 1)
Quarter: 2017Q3

REPORT INFORMATION
  Report Type: Spontaneous
  Country: US (occurrence: US)
  Receive Date: 20170829
  Receipt Date: 20170829
  Transmission Date: 20171127
  Serious: No
  Sender: FDA-Public Use
  Company Number: US-JNJFOC-20170628244

PATIENT
  Age: 14 Year
  Sex: Male
  Weight: 64.41 kg

DRUGS (5)
  1. REMICADE [Suspect]
     Active Substance: INFLIXIMAB
     Indication: CROHN^S DISEASE
     Route: 042
     Dates: start: 201703, end: 201705
  2. REMICADE [Suspect]
     Active Substance: INFLIXIMAB
     Indication: CROHN^S DISEASE
     Route: 042
     Dates: start: 201706
  3. IRON [Concomitant]
     Active Substance: IRON
     Indication: ANAEMIA
     Route: 065
  4. REMICADE [Suspect]
     Active Substance: INFLIXIMAB
     Indication: CROHN^S DISEASE
     Route: 042
     Dates: start: 201604, end: 201703
  5. REMICADE [Suspect]
     Active Substance: INFLIXIMAB
     Indication: CROHN^S DISEASE
     Route: 042
     Dates: start: 201705, end: 201706

REACTIONS (7)
  - Diarrhoea [Recovered/Resolved]
  - Drug effect decreased [Unknown]
  - Off label use [Unknown]
  - Decreased appetite [Recovered/Resolved]
  - Product use issue [Unknown]
  - Fatigue [Recovered/Resolved]
  - Abdominal pain [Recovered/Resolved]

NARRATIVE: CASE EVENT DATE: 201604
